FAERS Safety Report 9429256 (Version 1)
Quarter: 2013Q3

REPORT INFORMATION
  Report Type: Spontaneous
  Country: US (occurrence: US)
  Receive Date: 20130730
  Receipt Date: 20130730
  Transmission Date: 20140515
  Serious: No
  Sender: FDA-Public Use
  Company Number: US-B.I. PHARMACEUTICALS,INC./RIDGEFIELD-2013-BI-21940BP

PATIENT
  Age: 70 Year
  Sex: Male
  Weight: 88 kg

DRUGS (4)
  1. CATAPRES [Suspect]
     Indication: ANXIETY
     Dosage: STRENGTH: 5.0 MG (0.2 MG / DAY); DAILY DOSE: 5.0 MG
     Dates: start: 201304
  2. CATAPRES [Suspect]
     Indication: POST-TRAUMATIC STRESS DISORDER
  3. LISINOPRIL [Concomitant]
     Indication: HYPERTENSION
     Route: 048
     Dates: start: 2008
  4. TAMSULOSIN [Concomitant]
     Indication: PROSTATOMEGALY
     Route: 048
     Dates: start: 2008

REACTIONS (4)
  - Dermal cyst [Recovered/Resolved]
  - Dermal cyst [Not Recovered/Not Resolved]
  - Dermal cyst [Not Recovered/Not Resolved]
  - Off label use [Not Recovered/Not Resolved]
